FAERS Safety Report 16157718 (Version 2)
Quarter: 2019Q2

REPORT INFORMATION
  Report Type: Spontaneous
  Country: JP (occurrence: JP)
  Receive Date: 20190404
  Receipt Date: 20190412
  Transmission Date: 20190711
  Serious: Yes (Other)
  Sender: FDA-Public Use
  Company Number: JP-JNJFOC-20190402013

PATIENT
  Sex: Male

DRUGS (1)
  1. ZYTIGA [Suspect]
     Active Substance: ABIRATERONE ACETATE
     Indication: PROSTATE CANCER
     Route: 048
     Dates: start: 201902

REACTIONS (5)
  - Prostatic specific antigen increased [Unknown]
  - Drug ineffective [Unknown]
  - Haematuria [Unknown]
  - Haemorrhage subcutaneous [Unknown]
  - Dysuria [Unknown]

NARRATIVE: CASE EVENT DATE: 201902
